FAERS Safety Report 5894742-9 (Version None)
Quarter: 2008Q3

REPORT INFORMATION
  Report Type: 
  Country: None (occurrence: None)
  Receive Date: 20080924
  Receipt Date: 20080609
  Transmission Date: 20090109
  Serious: No
  Sender: FDA-Public Use
  Company Number: US-ASTRAZENECA-2008UW11537

PATIENT
  Age: 40 Year
  Sex: Female
  Weight: 136.1 kg

DRUGS (5)
  1. SEROQUEL [Suspect]
     Indication: ANXIETY DISORDER
     Route: 048
     Dates: end: 20080601
  2. SEROQUEL [Suspect]
     Indication: PANIC DISORDER
     Route: 048
     Dates: end: 20080601
  3. SEROQUEL [Suspect]
     Route: 048
     Dates: start: 20080601
  4. SEROQUEL [Suspect]
     Route: 048
     Dates: start: 20080601
  5. CYMBALTA [Concomitant]

REACTIONS (5)
  - BLOOD GLUCOSE INCREASED [None]
  - FEELING ABNORMAL [None]
  - HYPOAESTHESIA [None]
  - INSOMNIA [None]
  - PARAESTHESIA [None]
